FAERS Safety Report 19611216 (Version 1)
Quarter: 2021Q3

REPORT INFORMATION
  Report Type: Spontaneous
  Country: DE (occurrence: DE)
  Receive Date: 20210726
  Receipt Date: 20210726
  Transmission Date: 20211014
  Serious: Yes (Other)
  Sender: FDA-Public Use
  Company Number: DE-PFIZER INC-2021875783

PATIENT
  Age: 18 Year
  Sex: Female

DRUGS (9)
  1. VALPROAT [Concomitant]
     Active Substance: VALPROATE SODIUM
     Dosage: 150 MG, 1X/DAY (FOR A LONG TIME)
     Dates: end: 20200824
  2. VENLAFAXIN PFIZER RETARD [Interacting]
     Active Substance: VENLAFAXINE HYDROCHLORIDE
     Dosage: 75 MG, 1X/DAY (THE ADVERSE EVENT OCCURED UNDER THIS DOSE)
     Dates: start: 20200918, end: 20200921
  3. VENLAFAXIN PFIZER RETARD [Interacting]
     Active Substance: VENLAFAXINE HYDROCHLORIDE
     Dosage: 225 MG, 1X/DAY
     Dates: start: 20200901, end: 20200907
  4. VENLAFAXIN PFIZER RETARD [Interacting]
     Active Substance: VENLAFAXINE HYDROCHLORIDE
     Dosage: 18.75 MG, 1X/DAY
     Dates: start: 20200928
  5. BUPROPION. [Interacting]
     Active Substance: BUPROPION
     Dosage: 150 MG, 1X/DAY
     Dates: start: 20200908, end: 20200914
  6. VENLAFAXIN PFIZER RETARD [Interacting]
     Active Substance: VENLAFAXINE HYDROCHLORIDE
     Dosage: 37.5 MG, 1X/DAY
     Dates: start: 20200923, end: 20200927
  7. BUPROPION. [Interacting]
     Active Substance: BUPROPION
     Dates: start: 20200915
  8. VENLAFAXIN PFIZER RETARD [Suspect]
     Active Substance: VENLAFAXINE HYDROCHLORIDE
     Dosage: 150 MG, 1X/DAY
     Dates: start: 20200908, end: 20200917
  9. VENLAFAXIN PFIZER RETARD [Interacting]
     Active Substance: VENLAFAXINE HYDROCHLORIDE
     Dosage: 150 MG, 1X/DAY (SINCE 1.5 YEARS)
     Dates: end: 20200831

REACTIONS (10)
  - Electric shock sensation [Recovered/Resolved]
  - Drug interaction [Recovered/Resolved]
  - Sleep disorder [Recovered/Resolved]
  - Nausea [Recovered/Resolved]
  - Drug withdrawal syndrome [Recovered/Resolved]
  - Malaise [Recovered/Resolved]
  - Crying [Recovered/Resolved]
  - Chest discomfort [Recovered/Resolved]
  - Head discomfort [Recovered/Resolved]
  - Eating disorder [Recovered/Resolved]

NARRATIVE: CASE EVENT DATE: 20200922
